FAERS Safety Report 5019512-5 (Version None)
Quarter: 2006Q2

REPORT INFORMATION
  Report Type: 
  Country: None (occurrence: None)
  Receive Date: 20060414
  Receipt Date: 20050621
  Transmission Date: 20061013
  Serious: Yes (Other)
  Sender: FDA-Public Use
  Company Number: US-JNJFOC-20050606080

PATIENT
  Age: 40 Year
  Sex: Female

DRUGS (1)
  1. ULTRAM [Suspect]
     Indication: PAIN
     Dosage: ORAL
     Route: 048
     Dates: start: 19990401

REACTIONS (1)
  - CONVULSION [None]
